FAERS Safety Report 11547479 (Version 1)
Quarter: 2015Q3

REPORT INFORMATION
  Report Type: Spontaneous
  Country: US (occurrence: US)
  Receive Date: 20150903
  Receipt Date: 20150903
  Transmission Date: 20151125
  Serious: No
  Sender: FDA-Public Use
  Company Number: US-ELI_LILLY_AND_COMPANY-US201102007177

PATIENT
  Sex: Female

DRUGS (3)
  1. HUMALOG [Suspect]
     Active Substance: INSULIN LISPRO
     Indication: DIABETES MELLITUS
     Dosage: UNK, 3/D
     Route: 065
  2. HUMALOG MIX75/25 [Suspect]
     Active Substance: INSULIN LISPRO
     Indication: DIABETES MELLITUS
     Dosage: UNK, UNKNOWN
     Route: 065
  3. LANTUS SOLOSTAR [Concomitant]
     Active Substance: INSULIN GLARGINE
     Indication: DIABETES MELLITUS

REACTIONS (5)
  - Weight increased [Not Recovered/Not Resolved]
  - Diet refusal [Not Recovered/Not Resolved]
  - Injection site swelling [Not Recovered/Not Resolved]
  - Glycosylated haemoglobin increased [Recovered/Resolved]
  - Blood glucose increased [Not Recovered/Not Resolved]
